FAERS Safety Report 15475362 (Version 1)
Quarter: 2018Q4

REPORT INFORMATION
  Report Type: Spontaneous
  Country: US (occurrence: US)
  Receive Date: 20181008
  Receipt Date: 20181008
  Transmission Date: 20190205
  Serious: No
  Sender: FDA-Public Use
  Company Number: US-SA-2018SA276417

PATIENT
  Age: 75 Year
  Sex: Female

DRUGS (1)
  1. DULCOEASE [Suspect]
     Active Substance: DOCUSATE SODIUM
     Indication: CONSTIPATION
     Dosage: UNK UNK, UNK
     Route: 065
     Dates: start: 20180925

REACTIONS (5)
  - Drug ineffective [Unknown]
  - Headache [Unknown]
  - Nausea [Unknown]
  - Abdominal pain [Unknown]
  - Pyrexia [Unknown]

NARRATIVE: CASE EVENT DATE: 20180926
